FAERS Safety Report 5840443-2 (Version None)
Quarter: 2008Q3

REPORT INFORMATION
  Report Type: 
  Country: None (occurrence: None)
  Receive Date: 20080807
  Receipt Date: 20080723
  Transmission Date: 20090109
  Serious: Yes (Other)
  Sender: FDA-Public Use
  Company Number: 031138

PATIENT
  Age: 25 Year
  Sex: Male

DRUGS (1)
  1. CLARAVIS [Suspect]
     Indication: ACNE CYSTIC
     Dosage: ORAL
     Route: 048
     Dates: start: 20080501, end: 20080601

REACTIONS (2)
  - PATERNAL DRUGS AFFECTING FOETUS [None]
  - PREGNANCY [None]
